FAERS Safety Report 7275497-2 (Version None)
Quarter: 2011Q1

REPORT INFORMATION
  Report Type: 
  Country: None (occurrence: None)
  Receive Date: 20110204
  Receipt Date: 20110126
  Transmission Date: 20110831
  Serious: Yes (Death, Hospitalization, Other)
  Sender: FDA-Public Use
  Company Number: GB-CELGENEUS-167-C5013-10100800

PATIENT
  Sex: Male

DRUGS (3)
  1. CC-5013\PLACEBO [Suspect]
     Indication: PROSTATE CANCER
     Route: 048
     Dates: start: 20100930, end: 20101008
  2. DOCETAXEL [Suspect]
     Indication: PROSTATE CANCER
     Route: 065
     Dates: start: 20100930, end: 20101008
  3. PREDNISONE [Suspect]
     Indication: PROSTATE CANCER
     Route: 065
     Dates: start: 20100930, end: 20101008

REACTIONS (3)
  - CONFUSIONAL STATE [None]
  - PAIN [None]
  - LETHARGY [None]
